FAERS Safety Report 6129916-5 (Version None)
Quarter: 2009Q1

REPORT INFORMATION
  Report Type: 
  Country: None (occurrence: None)
  Receive Date: 20090323
  Receipt Date: 20090323
  Transmission Date: 20090719
  Serious: No
  Sender: FDA-Public Use
  Company Number: None

PATIENT
  Sex: Female
  Weight: 57.1532 kg

DRUGS (3)
  1. LYRICA [Suspect]
     Indication: INJURY
     Dosage: 50MG 100MG 2X'S A DAY PO
     Route: 048
     Dates: start: 20070220, end: 20090322
  2. LYRICA [Suspect]
     Indication: NERVE INJURY
     Dosage: 50MG 100MG 2X'S A DAY PO
     Route: 048
     Dates: start: 20070220, end: 20090322
  3. LYRICA [Suspect]
     Indication: SPINAL DISORDER
     Dosage: 50MG 100MG 2X'S A DAY PO
     Route: 048
     Dates: start: 20070220, end: 20090322

REACTIONS (3)
  - HALLUCINATION [None]
  - RASH [None]
  - SCAR [None]
